FAERS Safety Report 13414164 (Version 2)
Quarter: 2017Q2

REPORT INFORMATION
  Report Type: Spontaneous
  Country: CA (occurrence: CA)
  Receive Date: 20170407
  Receipt Date: 20170418
  Transmission Date: 20170830
  Serious: Yes (Other)
  Sender: FDA-Public Use
  Company Number: CA-PFIZER INC-2017142021

PATIENT
  Age: 50 Year
  Sex: Female

DRUGS (5)
  1. ATIVAN [Suspect]
     Active Substance: LORAZEPAM
     Indication: FIBROMYALGIA
     Dosage: 0.5 MG, 2X/DAY
     Route: 048
     Dates: start: 201006
  2. ATIVAN [Suspect]
     Active Substance: LORAZEPAM
     Indication: ANXIETY
     Dosage: 0.5 MG, 3X/DAY
     Route: 048
     Dates: start: 201007
  3. LYRICA [Suspect]
     Active Substance: PREGABALIN
     Dosage: 3 DF, DAILY (3 DOSES OF 25MG DAILY)
     Route: 048
     Dates: start: 201410
  4. LYRICA [Suspect]
     Active Substance: PREGABALIN
     Indication: FIBROMYALGIA
     Dosage: UNK
     Route: 048
     Dates: start: 2010
  5. ATIVAN [Suspect]
     Active Substance: LORAZEPAM
     Dosage: 7 DF, DAILY; 7 DOSES OF 0.5 MG DAILY (2 DOSES AM, 2 DOSES AFTERNOON AND 3 DOSES AT HS)
     Route: 048
     Dates: start: 201701

REACTIONS (1)
  - Macular fibrosis [Not Recovered/Not Resolved]
